FAERS Safety Report 4732437-5 (Version None)
Quarter: 2005Q3

REPORT INFORMATION
  Report Type: 
  Country: None (occurrence: None)
  Receive Date: 20050801
  Receipt Date: 20050722
  Transmission Date: 20060218
  Serious: Yes (Hospitalization, Other)
  Sender: FDA-Public Use
  Company Number: KII-2005-0017701

PATIENT
  Age: 32 Year
  Sex: Female

DRUGS (1)
  1. BUPRENORPHINE (SIMILAR TO IND 50,273)(BUPRENORPHINE) UNKNOWN [Suspect]
     Dosage: SEE TEXT, ORAL
     Route: 048

REACTIONS (3)
  - COMA [None]
  - FATIGUE [None]
  - MIOSIS [None]
